FAERS Safety Report 14544809 (Version 2)
Quarter: 2018Q1

REPORT INFORMATION
  Report Type: Spontaneous
  Country: IT (occurrence: IT)
  Receive Date: 20180217
  Receipt Date: 20180222
  Transmission Date: 20180509
  Serious: Yes (Other)
  Sender: FDA-Public Use
  Company Number: IT-AUROBINDO-AUR-APL-2018-007488

PATIENT
  Age: 65 Year
  Sex: Male

DRUGS (4)
  1. DOXAZOSIN [Suspect]
     Active Substance: DOXAZOSIN\DOXAZOSIN MESYLATE
     Indication: HYPERTENSION
     Dosage: STOP DATE: 2017/2018 ()
     Route: 048
     Dates: start: 20110101
  2. RAMIPRIL+HYDROCHLOROTHIAZIDE [Suspect]
     Active Substance: HYDROCHLOROTHIAZIDE\RAMIPRIL
     Indication: HYPERTENSION
     Dosage: UNK
     Route: 048
     Dates: start: 20110101
  3. RAMIPRIL. [Suspect]
     Active Substance: RAMIPRIL
     Indication: HYPERTENSION
     Dosage: UNK
     Route: 048
     Dates: start: 20110101
  4. CARVEDILOL FILM-COATED TABLETS [Suspect]
     Active Substance: CARVEDILOL
     Indication: HYPERTENSION
     Dosage: UNK
     Route: 048
     Dates: start: 20110101

REACTIONS (14)
  - Angioedema [Recovering/Resolving]
  - Orthostatic hypotension [Unknown]
  - Respiratory disorder [Unknown]
  - Localised oedema [Unknown]
  - Salivary hypersecretion [Recovering/Resolving]
  - Abdominal distension [Unknown]
  - Somnolence [Unknown]
  - Asthma [Unknown]
  - Abdominal discomfort [Unknown]
  - Cough [Unknown]
  - Speech disorder [Recovering/Resolving]
  - Oedema peripheral [Unknown]
  - Oesophageal discomfort [Unknown]
  - Mouth breathing [Unknown]

NARRATIVE: CASE EVENT DATE: 20170901
